FAERS Safety Report 7305019-9 (Version None)
Quarter: 2011Q1

REPORT INFORMATION
  Report Type: 
  Country: None (occurrence: None)
  Receive Date: 20110222
  Receipt Date: 20110210
  Transmission Date: 20110831
  Serious: Yes (Hospitalization, Other)
  Sender: FDA-Public Use
  Company Number: US-CELGENEUS-163-21880-11021531

PATIENT
  Sex: Female

DRUGS (9)
  1. ALBUTEROL [Concomitant]
     Route: 065
  2. LOVENOX [Concomitant]
     Route: 065
  3. NEURONTIN [Concomitant]
     Route: 065
  4. VITAMIN B-12 [Concomitant]
     Route: 065
  5. LORATADINE [Concomitant]
     Route: 065
  6. REVLIMID [Suspect]
     Indication: MULTIPLE MYELOMA
     Route: 048
     Dates: start: 20080920
  7. METRONIDAZOLE [Concomitant]
     Route: 065
  8. SUDAFED 12 HOUR [Concomitant]
     Route: 065
  9. COUMADIN [Concomitant]
     Route: 065

REACTIONS (3)
  - HERNIA [None]
  - DIARRHOEA [None]
  - SMALL INTESTINAL OBSTRUCTION [None]
